FAERS Safety Report 6743084-8 (Version None)
Quarter: 2010Q2

REPORT INFORMATION
  Report Type: 
  Country: None (occurrence: None)
  Receive Date: 20100527
  Receipt Date: 20100517
  Transmission Date: 20101027
  Serious: Yes (Death)
  Sender: FDA-Public Use
  Company Number: FR-JNJFOC-20100508778

PATIENT
  Sex: Male

DRUGS (6)
  1. ZALDIAR [Suspect]
     Indication: PAIN
     Route: 048
  2. TYSABRI [Suspect]
     Indication: MULTIPLE SCLEROSIS
     Route: 041
  3. LYRICA [Suspect]
     Indication: PAIN IN EXTREMITY
     Route: 048
  4. RAVOTRIL [Suspect]
     Indication: DRUG USE FOR UNKNOWN INDICATION
     Route: 048
  5. DITROPAN [Suspect]
     Indication: MICTURITION DISORDER
     Route: 048
  6. TAMSULOSIN HCL [Suspect]
     Indication: MICTURITION DISORDER
     Route: 048

REACTIONS (5)
  - ACCIDENTAL DEATH [None]
  - AMNESIA [None]
  - ANXIETY [None]
  - CONFUSIONAL STATE [None]
  - INSOMNIA [None]
